FAERS Safety Report 10560130 (Version 4)
Quarter: 2015Q1

REPORT INFORMATION
  Report Type: Spontaneous
  Country: FR (occurrence: FR)
  Receive Date: 20141103
  Receipt Date: 20150105
  Transmission Date: 20150720
  Serious: Yes (Hospitalization, Other)
  Sender: FDA-Public Use
  Company Number: FR-JNJFOC-20141017076

PATIENT
  Sex: Female

DRUGS (8)
  1. ESOMEPRAZOLE [Concomitant]
     Active Substance: ESOMEPRAZOLE
     Dosage: 20 (UNITS UNSPECIFIED) ONCE
     Route: 065
  2. AOTAL [Concomitant]
     Active Substance: ACAMPROSATE CALCIUM
     Dosage: 2 TO 3 TIMES PER DAY
     Route: 065
  3. TERCIAN [Suspect]
     Active Substance: CYAMEMAZINE
     Indication: PERSONALITY DISORDER
     Route: 048
     Dates: start: 200910
  4. THERALENE [Concomitant]
     Active Substance: TRIMEPRAZINE
     Route: 065
  5. RISPERDAL [Suspect]
     Active Substance: RISPERIDONE
     Indication: PERSONALITY DISORDER
     Route: 048
     Dates: start: 201303
  6. RISPERDAL [Suspect]
     Active Substance: RISPERIDONE
     Indication: PERSONALITY DISORDER
     Route: 048
     Dates: start: 200908
  7. RISPERDAL [Suspect]
     Active Substance: RISPERIDONE
     Indication: PERSONALITY DISORDER
     Route: 048
     Dates: end: 20140603
  8. APROVEL [Concomitant]
     Active Substance: IRBESARTAN
     Route: 065

REACTIONS (4)
  - General physical health deterioration [Unknown]
  - Hepatitis toxic [Recovering/Resolving]
  - Malaise [Unknown]
  - Interstitial lung disease [Unknown]
